FAERS Safety Report 17563396 (Version 2)
Quarter: 2021Q1

REPORT INFORMATION
  Report Type: Spontaneous
  Country: US (occurrence: US)
  Receive Date: 20200319
  Receipt Date: 20210318
  Transmission Date: 20210419
  Serious: No
  Sender: FDA-Public Use
  Company Number: US-CATALYST PHARMACEUTICALS, INC-2020CAT00043

PATIENT
  Age: 77 Year
  Sex: Female
  Weight: 63.04 kg

DRUGS (10)
  1. PANTOPRAZOLE [Concomitant]
     Active Substance: PANTOPRAZOLE
     Dosage: 40 MG, 1X/DAY
  2. LOW DOSE ASPIRIN [Concomitant]
     Active Substance: ASPIRIN
  3. TYLENOL [Concomitant]
     Active Substance: ACETAMINOPHEN
  4. LISINOPRIL. [Concomitant]
     Active Substance: LISINOPRIL
  5. FIRDAPSE [Suspect]
     Active Substance: AMIFAMPRIDINE PHOSPHATE
     Dosage: 20 MG, 4X/DAY
     Route: 048
     Dates: start: 2020
  6. SIMVASTATIN. [Concomitant]
     Active Substance: SIMVASTATIN
     Dosage: 40 MG, 1X/DAY
  7. PRESERVISION [Concomitant]
     Active Substance: MINERALS\VITAMINS
  8. METOPROLOL. [Concomitant]
     Active Substance: METOPROLOL
     Dosage: 25 MG, 1X/DAY
  9. MESTINON [Concomitant]
     Active Substance: PYRIDOSTIGMINE BROMIDE
     Dosage: 60 MG, 2X/DAY
  10. FIRDAPSE [Suspect]
     Active Substance: AMIFAMPRIDINE PHOSPHATE
     Indication: MYASTHENIC SYNDROME
     Dosage: 10 MG, 3X/DAY
     Route: 048
     Dates: start: 20200130, end: 2020

REACTIONS (8)
  - Abdominal discomfort [Not Recovered/Not Resolved]
  - Gait disturbance [Unknown]
  - Inappropriate schedule of product administration [Recovered/Resolved]
  - Paraesthesia [Not Recovered/Not Resolved]
  - Hypoaesthesia [Not Recovered/Not Resolved]
  - Feeling cold [Not Recovered/Not Resolved]
  - Limb discomfort [Unknown]
  - Therapeutic product effect incomplete [Not Recovered/Not Resolved]

NARRATIVE: CASE EVENT DATE: 2020
